FAERS Safety Report 15777896 (Version 1)
Quarter: 2018Q4

REPORT INFORMATION
  Report Type: Spontaneous
  Country: US (occurrence: US)
  Receive Date: 20181231
  Receipt Date: 20181231
  Transmission Date: 20190205
  Serious: Yes (Hospitalization, Disabling)
  Sender: FDA-Public Use
  Company Number: None

PATIENT
  Age: 31 Year
  Sex: Female
  Weight: 81 kg

DRUGS (1)
  1. CIPROFLOXACIN. [Suspect]
     Active Substance: CIPROFLOXACIN
     Indication: URINARY TRACT INFECTION
     Dosage: ?          QUANTITY:1 TABLET(S);?
     Route: 048
     Dates: start: 20181003, end: 20181005

REACTIONS (12)
  - Abdominal pain upper [None]
  - Tremor [None]
  - Disorientation [None]
  - Asthenia [None]
  - Headache [None]
  - Diarrhoea [None]
  - Nausea [None]
  - Anxiety [None]
  - Chills [None]
  - Feeling abnormal [None]
  - Confusional state [None]
  - Dizziness [None]

NARRATIVE: CASE EVENT DATE: 20181003
